FAERS Safety Report 13303930 (Version 1)
Quarter: 2017Q1

REPORT INFORMATION
  Report Type: Not Available
  Country: AM (occurrence: None)
  Receive Date: 20170307
  Receipt Date: 20170307
  Transmission Date: 20170428
  Serious: Yes (Other)
  Sender: FDA-Public Use
  Company Number: --2017-IR-000004

PATIENT
  Age: 36 Year
  Sex: Female

DRUGS (1)
  1. AMLODIPINE BESYLATE BRAND UNSPECIFIED (VIVIMED) [Suspect]
     Active Substance: AMLODIPINE BESYLATE
     Indication: SUICIDE ATTEMPT
     Dosage: 100 TABLETS OF AMLODIPINE 5 MG

REACTIONS (5)
  - Suicide attempt [Recovered/Resolved]
  - Overdose [Recovered/Resolved]
  - Renal failure [Recovered/Resolved]
  - Intentional overdose [None]
  - Non-cardiogenic pulmonary oedema [Recovered/Resolved]
